FAERS Safety Report 21516549 (Version 2)
Quarter: 2022Q4

REPORT INFORMATION
  Report Type: Spontaneous
  Country: US (occurrence: US)
  Receive Date: 20221027
  Receipt Date: 20221107
  Transmission Date: 20230113
  Serious: Yes (Other)
  Sender: FDA-Public Use
  Company Number: US-INCYTE CORPORATION-2022IN010279

PATIENT

DRUGS (1)
  1. JAKAFI [Suspect]
     Active Substance: RUXOLITINIB
     Indication: Myelodysplastic syndrome
     Dosage: UNK
     Route: 065

REACTIONS (14)
  - Cardiac infection [Unknown]
  - Renal impairment [Unknown]
  - Pulmonary hypertension [Unknown]
  - Cardiac valve vegetation [Unknown]
  - Endocarditis [Unknown]
  - Swelling [Unknown]
  - Fatigue [Unknown]
  - Arthralgia [Unknown]
  - Thyroid disorder [Unknown]
  - Gastrooesophageal reflux disease [Unknown]
  - Micturition urgency [Unknown]
  - Mitral valve prolapse [Unknown]
  - Headache [Unknown]
  - Off label use [Unknown]
